FAERS Safety Report 9976510 (Version 1)
Quarter: 2014Q1

REPORT INFORMATION
  Report Type: Report from Study
  Country: US (occurrence: US)
  Receive Date: 20140306
  Receipt Date: 20140306
  Transmission Date: 20141002
  Serious: Yes (Hospitalization, Other)
  Sender: FDA-Public Use
  Company Number: US-ABBVIE-13P-163-1165926-00

PATIENT
  Age: 61 Year
  Sex: Female

DRUGS (13)
  1. HUMIRA [Suspect]
     Indication: RHEUMATOID ARTHRITIS
     Dates: start: 201001, end: 20110611
  2. OMEPRAZOLE [Concomitant]
     Indication: GASTROOESOPHAGEAL REFLUX DISEASE
  3. TRAMADOL [Concomitant]
     Indication: PAIN
     Dosage: EVERY 8 HOURS AS NEEDED
  4. PROMETHAZINE [Concomitant]
     Indication: URINARY TRACT INFECTION
     Dosage: 2-3 TIMES A DAY FOR A MONTH
  5. NITROFURANTOIN [Concomitant]
     Indication: URINARY TRACT INFECTION
  6. SUCRALFATE [Concomitant]
     Indication: URINARY TRACT INFECTION
  7. LEVOTHYROXINE [Concomitant]
     Indication: HYPOTHYROIDISM
  8. LEVOTHYROXINE [Concomitant]
  9. ZOFRAN [Concomitant]
     Indication: NAUSEA
  10. ZOFRAN [Concomitant]
     Indication: VOMITING
  11. MACROBID [Concomitant]
     Indication: URINARY TRACT INFECTION
  12. DONEPEZIL [Concomitant]
     Indication: PRODUCT USED FOR UNKNOWN INDICATION
  13. DONEPEZIL [Concomitant]

REACTIONS (22)
  - Dehydration [Recovered/Resolved]
  - Cholelithiasis [Unknown]
  - Nausea [Unknown]
  - Osteoporosis [Not Recovered/Not Resolved]
  - Hypophagia [Unknown]
  - Lethargy [Unknown]
  - Hypersomnia [Unknown]
  - Nausea [Unknown]
  - Vomiting [Unknown]
  - Diarrhoea [Unknown]
  - Ulcer [Unknown]
  - Hypothyroidism [Unknown]
  - Dehydration [Unknown]
  - Urinary tract infection [Unknown]
  - Confusional state [Unknown]
  - Memory impairment [Unknown]
  - Urinary tract infection [Unknown]
  - Fluid intake reduced [Unknown]
  - Dehydration [Unknown]
  - Nausea [Unknown]
  - Vomiting [Unknown]
  - Abdominal pain upper [Unknown]
